FAERS Safety Report 23053091 (Version 1)
Quarter: 2023Q4

REPORT INFORMATION
  Report Type: Spontaneous
  Country: CN (occurrence: CN)
  Receive Date: 20231011
  Receipt Date: 20231011
  Transmission Date: 20240109
  Serious: Yes (Hospitalization, Other)
  Sender: FDA-Public Use
  Company Number: CN-UCBSA-2023047977

PATIENT
  Age: 33 Year
  Sex: Male

DRUGS (15)
  1. LEVETIRACETAM [Suspect]
     Active Substance: LEVETIRACETAM
     Indication: Epilepsy
     Dosage: UNK, BY GASTRIC TUBE INJECTION
  2. LEVETIRACETAM [Suspect]
     Active Substance: LEVETIRACETAM
     Dosage: 1 GRAM, 2X/DAY (BID)
  3. MIDAZOLAM [Suspect]
     Active Substance: MIDAZOLAM
     Indication: Epilepsy
     Dosage: UNK, INTRAVENOUS INJECTION
     Route: 042
  4. MIDAZOLAM [Suspect]
     Active Substance: MIDAZOLAM
     Dosage: THE INJECTION RATE OF MIDAZOLAM WAS ADJUSTED TO 20 MG/H
  5. MIDAZOLAM [Suspect]
     Active Substance: MIDAZOLAM
     Dosage: 0.4 GRAM, 3X/DAY (TID)
  6. DIAZEPAM [Concomitant]
     Active Substance: DIAZEPAM
     Indication: Epilepsy
     Dosage: UNK
     Route: 042
  7. VALPROATE [Concomitant]
     Active Substance: VALPROIC ACID
     Indication: Epilepsy
     Dosage: UNK
     Route: 042
  8. VALPROATE [Concomitant]
     Active Substance: VALPROIC ACID
     Dosage: UNK, BY GASTRIC TUBE INJECTION
  9. VALPROATE [Concomitant]
     Active Substance: VALPROIC ACID
     Dosage: 1.2 GRAM, 2X/DAY (BID)
  10. PHENOBARBITAL [Concomitant]
     Active Substance: PHENOBARBITAL
     Indication: Epilepsy
     Dosage: UNK
     Route: 030
  11. OXCARBAZEPINE [Concomitant]
     Active Substance: OXCARBAZEPINE
     Indication: Epilepsy
     Dosage: UNK, BY GASTRIC TUBE INJECTION
  12. OXCARBAZEPINE [Concomitant]
     Active Substance: OXCARBAZEPINE
     Dosage: UNK
     Route: 048
  13. PROPOFOL [Concomitant]
     Active Substance: PROPOFOL
     Indication: Epilepsy
     Dosage: UNK
     Route: 042
  14. PROPOFOL [Concomitant]
     Active Substance: PROPOFOL
     Dosage: THE INJECTION RATE OF PROPOFOL WAS ADJUSTED TO 0.15 G/H
  15. VALPROATE SODIUM [Concomitant]
     Active Substance: VALPROATE SODIUM
     Indication: Epilepsy
     Dosage: UNK

REACTIONS (2)
  - Respiratory depression [Recovered/Resolved]
  - Hypotension [Unknown]
